FAERS Safety Report 7602069-X (Version None)
Quarter: 2011Q3

REPORT INFORMATION
  Report Type: 
  Country: None (occurrence: None)
  Receive Date: 20110711
  Receipt Date: 20110706
  Transmission Date: 20111222
  Serious: Yes (Life-Threatening, Hospitalization)
  Sender: FDA-Public Use
  Company Number: US-ASTRAZENECA-2011SE40680

PATIENT
  Age: 82 Year
  Sex: Female

DRUGS (1)
  1. TOPROL-XL [Suspect]
     Route: 048

REACTIONS (3)
  - OVERDOSE [None]
  - RESPIRATORY FAILURE [None]
  - TRACHEOSTOMY [None]
